FAERS Safety Report 9080277 (Version 1)
Quarter: 2013Q1

REPORT INFORMATION
  Report Type: Spontaneous
  Country: US (occurrence: US)
  Receive Date: 20130130
  Receipt Date: 20130130
  Transmission Date: 20140127
  Serious: No
  Sender: FDA-Public Use
  Company Number: US-ABBOTT-12P-163-0970442-00

PATIENT
  Sex: Male
  Weight: 63.56 kg

DRUGS (4)
  1. HUMIRA 40 MG/0.8 ML PEN [Suspect]
     Indication: COLITIS ULCERATIVE
     Dates: start: 2011
  2. ASACOL [Concomitant]
     Indication: COLITIS ULCERATIVE
  3. AVODART [Concomitant]
     Indication: PROSTATOMEGALY
  4. UNNAMED MEDICATION [Concomitant]
     Indication: HYPERTENSION

REACTIONS (3)
  - Off label use [Not Recovered/Not Resolved]
  - Colitis ulcerative [Not Recovered/Not Resolved]
  - Injection site pain [Not Recovered/Not Resolved]
